FAERS Safety Report 9933552 (Version 1)
Quarter: 2014Q1

REPORT INFORMATION
  Report Type: Spontaneous
  Country: US (occurrence: US)
  Receive Date: 20140228
  Receipt Date: 20140228
  Transmission Date: 20141002
  Serious: No
  Sender: FDA-Public Use
  Company Number: US-ABBVIE-13P-163-1171172-00

PATIENT
  Age: 65 Year
  Sex: Male
  Weight: 105.33 kg

DRUGS (7)
  1. ANDROGEL [Suspect]
     Indication: BLOOD TESTOSTERONE DECREASED
     Dates: start: 2008, end: 20131118
  2. ANDROGEL [Suspect]
     Dates: start: 20131119
  3. LISINOPRIL [Concomitant]
     Indication: HYPERTENSION
  4. TRIAMTERENE/HCTZ [Concomitant]
     Indication: HYPERTENSION
  5. TOPROL [Concomitant]
     Indication: HYPERTENSION
  6. ASPIRIN [Concomitant]
     Indication: PRODUCT USED FOR UNKNOWN INDICATION
  7. PROAIR HFA [Concomitant]
     Indication: ASTHMA

REACTIONS (1)
  - Blood testosterone decreased [Not Recovered/Not Resolved]
